FAERS Safety Report 4939943-9 (Version None)
Quarter: 2006Q1

REPORT INFORMATION
  Report Type: 
  Country: None (occurrence: None)
  Receive Date: 20060310
  Receipt Date: 20060303
  Transmission Date: 20060701
  Serious: Yes (Other)
  Sender: FDA-Public Use
  Company Number: GB-GLAXOSMITHKLINE-B0414634A

PATIENT
  Sex: Male

DRUGS (3)
  1. SEROXAT [Suspect]
     Dosage: 20MG UNKNOWN
     Route: 065
  2. IBUPROFEN [Suspect]
     Route: 065
  3. ACETAMINOPHEN [Suspect]
     Route: 065

REACTIONS (4)
  - COMPLETED SUICIDE [None]
  - DRUG WITHDRAWAL SYNDROME [None]
  - ILL-DEFINED DISORDER [None]
  - INTENTIONAL OVERDOSE [None]
